FAERS Safety Report 25493395 (Version 1)
Quarter: 2025Q2

REPORT INFORMATION
  Report Type: Spontaneous
  Country: RU (occurrence: RU)
  Receive Date: 20250630
  Receipt Date: 20250630
  Transmission Date: 20250717
  Serious: Yes (Other)
  Sender: MYLAN
  Company Number: RU-MYLANLABS-2025M1054319

PATIENT

DRUGS (4)
  1. FONDAPARINUX [Suspect]
     Active Substance: FONDAPARINUX
     Indication: Embolism venous
  2. FONDAPARINUX [Suspect]
     Active Substance: FONDAPARINUX
     Route: 065
  3. FONDAPARINUX [Suspect]
     Active Substance: FONDAPARINUX
     Route: 065
  4. FONDAPARINUX [Suspect]
     Active Substance: FONDAPARINUX

REACTIONS (1)
  - Embolism venous [Unknown]
